FAERS Safety Report 16739543 (Version 2)
Quarter: 2019Q3

REPORT INFORMATION
  Report Type: Spontaneous
  Country: DE (occurrence: DE)
  Receive Date: 20190826
  Receipt Date: 20190925
  Transmission Date: 20191005
  Serious: Yes (Hospitalization)
  Sender: FDA-Public Use
  Company Number: PHHY2019DE195061

PATIENT
  Age: 73 Year
  Sex: Female
  Weight: 65 kg

DRUGS (7)
  1. BORTEZOMIB. [Suspect]
     Active Substance: BORTEZOMIB
     Indication: PLASMA CELL MYELOMA
     Dosage: 2.2 MG, QD (2.2 MILLIGRAM)
     Route: 065
     Dates: start: 20190617, end: 20190718
  2. THALIDOMIDE CELGENE [Suspect]
     Active Substance: THALIDOMIDE
     Indication: PLASMA CELL MYELOMA
     Dosage: 200 MG, QD (200 MILLIGRAM)
     Route: 048
     Dates: start: 20190617, end: 20190711
  3. PREDNISOLON [Concomitant]
     Active Substance: PREDNISOLONE
     Dosage: 25 MG, QD (25 MILLIGRAM)
     Route: 048
     Dates: start: 20190715, end: 20190717
  4. DEXAMETHASONE. [Suspect]
     Active Substance: DEXAMETHASONE
     Indication: PLASMA CELL MYELOMA
     Dosage: 40 MG, QD (40 MILLIGRAM)
     Route: 065
     Dates: start: 20190617, end: 20190718
  5. PANTOPRAZOLE [Concomitant]
     Active Substance: PANTOPRAZOLE
     Indication: PRODUCT USED FOR UNKNOWN INDICATION
     Dosage: 20 MG, QD (20 MILLIGRAM)
     Route: 048
     Dates: start: 20190711, end: 20190718
  6. PREDNISOLON [Concomitant]
     Active Substance: PREDNISOLONE
     Indication: PRODUCT USED FOR UNKNOWN INDICATION
     Dosage: 50 MG, QD (50 MILLIGRAM)
     Route: 048
     Dates: start: 20190711, end: 20190714
  7. TAVEGIL [Concomitant]
     Active Substance: CLEMASTINE FUMARATE
     Indication: PRODUCT USED FOR UNKNOWN INDICATION
     Dosage: 2 MG, QD (2 MILLIGRAM)
     Route: 048
     Dates: start: 20190711, end: 20190718

REACTIONS (2)
  - Dermatitis allergic [Recovering/Resolving]
  - Pyrexia [Recovered/Resolved]

NARRATIVE: CASE EVENT DATE: 20190711
